FAERS Safety Report 7261888-2 (Version None)
Quarter: 2011Q1

REPORT INFORMATION
  Report Type: 
  Country: None (occurrence: None)
  Receive Date: 20110130
  Receipt Date: 20101211
  Transmission Date: 20110831
  Serious: No
  Sender: FDA-Public Use
  Company Number: US-ABBOTT-10P-163-0691033-00

PATIENT
  Age: 58 Year
  Sex: Female

DRUGS (9)
  1. ADVAIR [Concomitant]
     Indication: ASTHMA
  2. PROVENTIL-HFA [Concomitant]
     Indication: ASTHMA
  3. R-TANNA [Concomitant]
     Indication: NASAL CONGESTION
  4. MULTIVIT [Concomitant]
     Indication: PRODUCT USED FOR UNKNOWN INDICATION
  5. VITAMIN B-12 [Concomitant]
     Indication: PRODUCT USED FOR UNKNOWN INDICATION
  6. HUMIRA [Suspect]
     Dates: start: 20101211
  7. CITALOPRAM [Concomitant]
     Indication: PRODUCT USED FOR UNKNOWN INDICATION
  8. VIT D [Concomitant]
     Indication: PRODUCT USED FOR UNKNOWN INDICATION
  9. HUMIRA [Suspect]
     Indication: PSORIATIC ARTHROPATHY
     Dates: start: 20101203

REACTIONS (2)
  - SNEEZING [None]
  - NASAL CONGESTION [None]
